FAERS Safety Report 6701504-9 (Version None)
Quarter: 2010Q2

REPORT INFORMATION
  Report Type: 
  Country: None (occurrence: None)
  Receive Date: 20100429
  Receipt Date: 20100420
  Transmission Date: 20101027
  Serious: Yes (Death)
  Sender: FDA-Public Use
  Company Number: US-JNJFOC-20090500590

PATIENT
  Sex: Female
  Weight: 59.42 kg

DRUGS (11)
  1. FENTANYL CITRATE [Suspect]
     Indication: PAIN
     Route: 062
  2. FENTANYL CITRATE [Suspect]
     Route: 062
  3. FENTANYL CITRATE [Suspect]
     Dosage: ONE 100 UG/HR PATCH AND ONE 25 UG/HR PATCH
     Route: 062
  4. ULTRAM [Suspect]
     Indication: PAIN
     Route: 048
  5. PREDNISONE [Concomitant]
  6. VICODIN [Concomitant]
  7. AMBIEN [Concomitant]
     Indication: SLEEP DISORDER
  8. PROTONIX [Concomitant]
  9. ATIVAN [Concomitant]
  10. CYTOXAN [Concomitant]
  11. KEPPRA [Concomitant]

REACTIONS (24)
  - ACCIDENTAL DEATH [None]
  - ANOXIC ENCEPHALOPATHY [None]
  - BRONCHOPNEUMONIA [None]
  - CARDIO-RESPIRATORY ARREST [None]
  - CONDITION AGGRAVATED [None]
  - DEPRESSION [None]
  - DIZZINESS [None]
  - DRUG SCREEN POSITIVE [None]
  - FALL [None]
  - HEPATIC ISCHAEMIA [None]
  - HYPERKALAEMIA [None]
  - HYPONATRAEMIA [None]
  - METABOLIC ACIDOSIS [None]
  - MUSCULAR WEAKNESS [None]
  - NARCOTIC INTOXICATION [None]
  - OSTEOPOROSIS [None]
  - OVERDOSE [None]
  - PAIN IN EXTREMITY [None]
  - PYELONEPHRITIS [None]
  - RIB FRACTURE [None]
  - SEPSIS SYNDROME [None]
  - UNRESPONSIVE TO STIMULI [None]
  - WALKING AID USER [None]
  - WEIGHT DECREASED [None]
